FAERS Safety Report 6064109-1 (Version None)
Quarter: 2009Q1

REPORT INFORMATION
  Report Type: 
  Country: None (occurrence: None)
  Receive Date: 20090204
  Receipt Date: 20090127
  Transmission Date: 20090719
  Serious: Yes (Death, Hospitalization)
  Sender: FDA-Public Use
  Company Number: ES-PFIZER INC-2005141391

PATIENT

DRUGS (6)
  1. SUNITINIB MALATE [Suspect]
     Indication: GASTROINTESTINAL STROMAL TUMOUR
     Dosage: 25 MG, 2X/DAY
     Dates: start: 20050917, end: 20051007
  2. NORFLOXACIN [Concomitant]
     Route: 048
     Dates: start: 20051001, end: 20051002
  3. OMEPRAZOLE [Concomitant]
     Route: 048
     Dates: end: 20051010
  4. TRYPTIZOL [Concomitant]
     Route: 048
     Dates: end: 20051008
  5. DIAZEPAM [Concomitant]
     Route: 048
     Dates: end: 20051008
  6. KONAKION [Concomitant]
     Route: 042
     Dates: start: 20051008

REACTIONS (2)
  - LIVER DISORDER [None]
  - RENAL FAILURE [None]
